FAERS Safety Report 20311175 (Version 2)
Quarter: 2022Q3

REPORT INFORMATION
  Report Type: Report from Study
  Country: US (occurrence: US)
  Receive Date: 20220107
  Receipt Date: 20220714
  Transmission Date: 20221026
  Serious: Yes (Other)
  Sender: FDA-Public Use
  Company Number: US-SANOFI-00920264

PATIENT
  Age: 59 Year
  Sex: Male

DRUGS (2)
  1. DUPILUMAB [Suspect]
     Active Substance: DUPILUMAB
     Indication: Neurodermatitis
     Dosage: 300 MG
     Route: 058
     Dates: start: 202101, end: 2021
  2. DUPILUMAB [Suspect]
     Active Substance: DUPILUMAB
     Indication: Neurodermatitis
     Dosage: 300 MG
     Route: 058
     Dates: start: 20211204

REACTIONS (1)
  - Tuberculosis [Recovered/Resolved]

NARRATIVE: CASE EVENT DATE: 20210101
